FAERS Safety Report 7760268-0 (Version None)
Quarter: 2011Q3

REPORT INFORMATION
  Report Type: 
  Country: None (occurrence: None)
  Receive Date: 20110919
  Receipt Date: 20110915
  Transmission Date: 20111222
  Serious: Yes (Other)
  Sender: FDA-Public Use
  Company Number: JP-GLAXOSMITHKLINE-B0748123A

PATIENT
  Age: 60 Year
  Sex: Male

DRUGS (1)
  1. ZOVIRAX [Suspect]
     Indication: HERPES ZOSTER
     Dosage: 750MG PER DAY
     Route: 042
     Dates: start: 20110914

REACTIONS (1)
  - VASCULITIS [None]
